FAERS Safety Report 13030059 (Version 4)
Quarter: 2017Q1

REPORT INFORMATION
  Report Type: Spontaneous
  Country: IT (occurrence: IT)
  Receive Date: 20161215
  Receipt Date: 20170217
  Transmission Date: 20170428
  Serious: Yes (Other)
  Sender: FDA-Public Use
  Company Number: IT-TEVA-719424ACC

PATIENT
  Age: 76 Year
  Sex: Male

DRUGS (3)
  1. IMATINIB [Suspect]
     Active Substance: IMATINIB
     Indication: LARYNGEAL SQUAMOUS CELL CARCINOMA
     Dosage: 400 MILLIGRAM DAILY;
     Route: 065
  2. CARBOPLATIN. [Suspect]
     Active Substance: CARBOPLATIN
     Indication: LARYNGEAL SQUAMOUS CELL CARCINOMA
     Dosage: AUC5 (450 MG TOTAL DOSE) (1 IN 21 D)
     Route: 065
     Dates: start: 20130901
  3. CETUXIMAB. [Suspect]
     Active Substance: CETUXIMAB
     Indication: LARYNGEAL SQUAMOUS CELL CARCINOMA
     Route: 065
     Dates: start: 20130901

REACTIONS (5)
  - Laryngeal cancer stage III [Unknown]
  - Disease progression [Unknown]
  - Chronic myeloid leukaemia recurrent [Unknown]
  - Off label use [Unknown]
  - Malignant neoplasm progression [Unknown]

NARRATIVE: CASE EVENT DATE: 20140201
